FAERS Safety Report 9679109 (Version 1)
Quarter: 2013Q4

REPORT INFORMATION
  Report Type: Spontaneous
  Country: GB (occurrence: None)
  Receive Date: 20131107
  Receipt Date: 20131107
  Transmission Date: 20140711
  Serious: Yes (Disabling)
  Sender: FDA-Public Use
  Company Number: AUR-APL-2013-09101

PATIENT
  Age: 91 Year
  Sex: Male
  Weight: 65 kg

DRUGS (7)
  1. DONEPEZIL [Suspect]
     Indication: PRODUCT USED FOR UNKNOWN INDICATION
     Route: 048
  2. AMLODIPINE (AMLODIPINE) [Concomitant]
  3. ASPIRIN (ACETYLSALICYLIC ACID) [Concomitant]
  4. CO-CODAMOL (PANADEINE CO) [Concomitant]
  5. LANSOPRAZOLE (LANSOPRAZOLE) [Concomitant]
  6. LISINOPRIL (LISINOPRIL) [Concomitant]
  7. TRIMETHOPRIM (TRIMETHOPRIM) [Concomitant]

REACTIONS (3)
  - Extrapyramidal disorder [None]
  - Urinary incontinence [None]
  - Parkinsonism [None]
